FAERS Safety Report 23252764 (Version 1)
Quarter: 2023Q4

REPORT INFORMATION
  Report Type: Spontaneous
  Country: US (occurrence: None)
  Receive Date: 20231201
  Receipt Date: 20231201
  Transmission Date: 20240109
  Serious: Yes (Hospitalization)
  Sender: FDA-Public Use
  Company Number: None

PATIENT
  Age: 62 Year
  Sex: Male

DRUGS (2)
  1. WILATE - VON WILLEBRAND FACTOR/COAGULATION FACTOR VIII COMPLEX (HUMAN) [Suspect]
     Active Substance: HUMAN COAGULATION FACTOR VIII/VON WILLEBRAND FACTOR COMPLEX
     Indication: Factor VIII deficiency
     Dosage: FREQUENCY : AS DIRECTED;?NFUSE 4500 FACTOR 8 UNITS (4050-4950) SLOW IV EVERY 12  HOURS FOR 5 DAYS TH
     Route: 042
     Dates: start: 202311, end: 20231126
  2. DEVICE [Suspect]
     Active Substance: DEVICE

REACTIONS (3)
  - Complication associated with device [None]
  - Joint microhaemorrhage [None]
  - Knee operation [None]

NARRATIVE: CASE EVENT DATE: 20231126
